FAERS Safety Report 22681878 (Version 5)
Quarter: 2025Q1

REPORT INFORMATION
  Report Type: Spontaneous
  Country: US (occurrence: US)
  Receive Date: 20230707
  Receipt Date: 20250331
  Transmission Date: 20250408
  Serious: No
  Sender: VERTEX
  Company Number: US-VERTEX PHARMACEUTICALS-2023-009574

PATIENT
  Age: 23 Year
  Sex: Female

DRUGS (1)
  1. TRIKAFTA [Suspect]
     Active Substance: ELEXACAFTOR\IVACAFTOR\TEZACAFTOR
     Indication: Cystic fibrosis
     Route: 048
     Dates: start: 2021

REACTIONS (17)
  - Lethargy [Recovering/Resolving]
  - Weight increased [Unknown]
  - Fatigue [Unknown]
  - Stress [Unknown]
  - Menstruation irregular [Unknown]
  - Feeling abnormal [Unknown]
  - Vaginal haemorrhage [Unknown]
  - Psychological trauma [Unknown]
  - Seborrhoea [Unknown]
  - Mental disorder [Not Recovered/Not Resolved]
  - Panic attack [Recovered/Resolved]
  - Lower respiratory tract infection [Unknown]
  - Moraxella test positive [Unknown]
  - Skin striae [Not Recovered/Not Resolved]
  - Fat tissue increased [Not Recovered/Not Resolved]
  - Nasopharyngitis [Unknown]
  - Influenza [Unknown]
